FAERS Safety Report 8062959-3 (Version None)
Quarter: 2012Q1

REPORT INFORMATION
  Report Type: 
  Country: None (occurrence: None)
  Receive Date: 20120123
  Receipt Date: 20120123
  Transmission Date: 20120608
  Serious: Yes (Other)
  Sender: FDA-Public Use
  Company Number: None

PATIENT
  Age: 70 Year
  Sex: Male
  Weight: 81.646 kg

DRUGS (1)
  1. PROPECIA [Suspect]
     Indication: ALOPECIA
     Dosage: 1 MG
     Route: 048
     Dates: start: 20040615, end: 20110610

REACTIONS (3)
  - LOSS OF LIBIDO [None]
  - DEPRESSION [None]
  - ERECTILE DYSFUNCTION [None]
